FAERS Safety Report 7099247-8 (Version None)
Quarter: 2010Q4

REPORT INFORMATION
  Report Type: 
  Country: None (occurrence: None)
  Receive Date: 20101112
  Receipt Date: 20101029
  Transmission Date: 20110411
  Serious: Yes (Other)
  Sender: FDA-Public Use
  Company Number: NL-CELGENEUS-114-21880-10111602

PATIENT

DRUGS (1)
  1. REVLIMID [Suspect]
     Route: 048

REACTIONS (5)
  - CEREBRAL DISORDER [None]
  - DIZZINESS [None]
  - MALAISE [None]
  - MYALGIA [None]
  - NAUSEA [None]
